FAERS Safety Report 13621983 (Version 1)
Quarter: 2017Q2

REPORT INFORMATION
  Report Type: Spontaneous
  Country: US (occurrence: US)
  Receive Date: 20170607
  Receipt Date: 20170607
  Transmission Date: 20170830
  Serious: Yes (Other)
  Sender: FDA-Public Use
  Company Number: US-ROCHE-1860777

PATIENT
  Sex: Male

DRUGS (1)
  1. XELODA [Suspect]
     Active Substance: CAPECITABINE
     Indication: COLON CANCER
     Dosage: BID FOR 14 DAYS, THEN(NO ADDTIONAL INFO PROVIDED)
     Route: 048
     Dates: start: 20160927

REACTIONS (2)
  - Dry skin [Unknown]
  - Skin fissures [Unknown]
